FAERS Safety Report 9553307 (Version 1)
Quarter: 2013Q3

REPORT INFORMATION
  Report Type: Spontaneous
  Country: US (occurrence: None)
  Receive Date: 20130724
  Receipt Date: 20130724
  Transmission Date: 20140515
  Serious: Yes (Hospitalization)
  Sender: FDA-Public Use
  Company Number: PHEH2013US009394

PATIENT
  Sex: 0

DRUGS (1)
  1. GLEEVEC [Suspect]
     Dosage: UNK, UNK, UNK

REACTIONS (2)
  - Gastrointestinal haemorrhage [None]
  - Oesophageal ulcer [None]
